FAERS Safety Report 4864977-2 (Version None)
Quarter: 2005Q4

REPORT INFORMATION
  Report Type: 
  Country: None (occurrence: None)
  Receive Date: 20051223
  Receipt Date: 20051204
  Transmission Date: 20060501
  Serious: Yes (Life-Threatening, Hospitalization, Other)
  Sender: FDA-Public Use
  Company Number: PHFR2005IE03943

PATIENT
  Age: 61 Year
  Sex: Female

DRUGS (3)
  1. CLOZARIL [Suspect]
     Indication: SCHIZOPHRENIA
     Dosage: 300MG/DAY
     Route: 048
     Dates: start: 20051117
  2. CLOZARIL [Suspect]
     Dosage: 400MG/DAY
     Route: 048
     Dates: end: 20051208
  3. ASPIRIN [Concomitant]
     Indication: CHEST PAIN
     Dosage: 75MG/DAY
     Route: 048
     Dates: start: 20000101

REACTIONS (8)
  - CELLULITIS [None]
  - DYSPNOEA [None]
  - NEUTROPHIL COUNT INCREASED [None]
  - PAIN IN EXTREMITY [None]
  - PLATELET COUNT INCREASED [None]
  - PULMONARY EMBOLISM [None]
  - SWELLING [None]
  - WHITE BLOOD CELL COUNT INCREASED [None]
